FAERS Safety Report 22145087 (Version 1)
Quarter: 2023Q1

REPORT INFORMATION
  Report Type: Report from Study
  Country: US (occurrence: US)
  Receive Date: 20230328
  Receipt Date: 20230328
  Transmission Date: 20230418
  Serious: Yes (Hospitalization, Other)
  Sender: FDA-Public Use
  Company Number: US-TAKEDA-US201921050

PATIENT
  Age: 73 Year
  Sex: Male
  Weight: 85 kg

DRUGS (15)
  1. TEDUGLUTIDE [Suspect]
     Active Substance: TEDUGLUTIDE
     Indication: Short-bowel syndrome
     Dosage: 4.2 MILLIGRAM, QD
     Route: 042
     Dates: start: 20180921, end: 201810
  2. TEDUGLUTIDE [Suspect]
     Active Substance: TEDUGLUTIDE
     Indication: Short-bowel syndrome
     Dosage: 4.2 MILLIGRAM, QD
     Route: 042
     Dates: start: 20180921, end: 201810
  3. TEDUGLUTIDE [Suspect]
     Active Substance: TEDUGLUTIDE
     Indication: Short-bowel syndrome
     Dosage: 4.2 MILLIGRAM, QD
     Route: 042
     Dates: start: 20180921, end: 201810
  4. TEDUGLUTIDE [Suspect]
     Active Substance: TEDUGLUTIDE
     Indication: Short-bowel syndrome
     Dosage: 4.2 MILLIGRAM, QD
     Route: 042
     Dates: start: 20180921, end: 201810
  5. TEDUGLUTIDE [Suspect]
     Active Substance: TEDUGLUTIDE
     Dosage: 4.2 MILLIGRAM, 2/WEEK
     Route: 042
     Dates: start: 20181209, end: 201902
  6. TEDUGLUTIDE [Suspect]
     Active Substance: TEDUGLUTIDE
     Dosage: 4.2 MILLIGRAM, 2/WEEK
     Route: 042
     Dates: start: 20181209, end: 201902
  7. TEDUGLUTIDE [Suspect]
     Active Substance: TEDUGLUTIDE
     Dosage: 4.2 MILLIGRAM, 2/WEEK
     Route: 042
     Dates: start: 20181209, end: 201902
  8. TEDUGLUTIDE [Suspect]
     Active Substance: TEDUGLUTIDE
     Dosage: 4.2 MILLIGRAM, 2/WEEK
     Route: 042
     Dates: start: 20181209, end: 201902
  9. TEDUGLUTIDE [Suspect]
     Active Substance: TEDUGLUTIDE
     Dosage: 2.1 MILLIGRAM, 2/WEEK
     Route: 042
     Dates: start: 201903, end: 20190320
  10. TEDUGLUTIDE [Suspect]
     Active Substance: TEDUGLUTIDE
     Dosage: 2.1 MILLIGRAM, 2/WEEK
     Route: 042
     Dates: start: 201903, end: 20190320
  11. TEDUGLUTIDE [Suspect]
     Active Substance: TEDUGLUTIDE
     Dosage: 2.1 MILLIGRAM, 2/WEEK
     Route: 042
     Dates: start: 201903, end: 20190320
  12. TEDUGLUTIDE [Suspect]
     Active Substance: TEDUGLUTIDE
     Dosage: 2.1 MILLIGRAM, 2/WEEK
     Route: 042
     Dates: start: 201903, end: 20190320
  13. ERGOCALCIFEROL [Concomitant]
     Active Substance: ERGOCALCIFEROL
     Indication: Vitamin D deficiency
     Dosage: 50000.00 INTERNATIONAL UNIT, 2/WEEK
     Route: 048
     Dates: start: 20171115
  14. CYANOCOBALAMIN [Concomitant]
     Active Substance: CYANOCOBALAMIN
     Indication: Vitamin B12 deficiency
     Dosage: 1000 MICROGRAM, MONTHLY
     Route: 030
     Dates: start: 20170705
  15. LASIX [Concomitant]
     Active Substance: FUROSEMIDE
     Indication: Oedema
     Dosage: 40 MILLIGRAM, QD
     Route: 048
     Dates: start: 20220228

REACTIONS (1)
  - Failure to thrive [Recovered/Resolved]

NARRATIVE: CASE EVENT DATE: 20190101
